FAERS Safety Report 19810257 (Version 1)
Quarter: 2021Q3

REPORT INFORMATION
  Report Type: Spontaneous
  Country: JP (occurrence: JP)
  Receive Date: 20210909
  Receipt Date: 20210909
  Transmission Date: 20211014
  Serious: Yes (Other)
  Sender: FDA-Public Use
  Company Number: JP-AMGEN-JPNSP2021139615

PATIENT
  Age: 4 Decade
  Sex: Female

DRUGS (1)
  1. VECTIBIX [Suspect]
     Active Substance: PANITUMUMAB
     Indication: COLON CANCER
     Dosage: UNK
     Route: 050

REACTIONS (9)
  - Decreased appetite [Unknown]
  - Dermatitis contact [Unknown]
  - Sleep disorder [Unknown]
  - Dermatitis acneiform [Unknown]
  - Skin exfoliation [Unknown]
  - Epidermal necrosis [Unknown]
  - Infection [Unknown]
  - Back pain [Unknown]
  - Hyperaesthesia [Unknown]
